FAERS Safety Report 5774130-6 (Version None)
Quarter: 2008Q2

REPORT INFORMATION
  Report Type: 
  Country: None (occurrence: None)
  Receive Date: 20080616
  Receipt Date: 20080530
  Transmission Date: 20081010
  Serious: Yes (Hospitalization)
  Sender: FDA-Public Use
  Company Number: NO-ASTRAZENECA-2008SE02990

PATIENT
  Age: 86 Year
  Sex: Male

DRUGS (1)
  1. SELO-ZOK [Suspect]
     Indication: CARDIAC FAILURE
     Route: 048

REACTIONS (2)
  - DIARRHOEA [None]
  - INTESTINAL DILATATION [None]
